FAERS Safety Report 19635128 (Version 3)
Quarter: 2022Q4

REPORT INFORMATION
  Report Type: Report from Study
  Country: TW (occurrence: TW)
  Receive Date: 20210729
  Receipt Date: 20221027
  Transmission Date: 20230112
  Serious: Yes (Hospitalization)
  Sender: FDA-Public Use
  Company Number: TW-BAYER-2021-183029

PATIENT
  Age: 83 Year
  Sex: Male
  Weight: 64 kg

DRUGS (39)
  1. RIVAROXABAN [Suspect]
     Active Substance: RIVAROXABAN
     Indication: Cerebrovascular accident prophylaxis
     Dosage: 10 MG, QD
     Route: 048
     Dates: start: 20200904, end: 20210310
  2. RIVAROXABAN [Suspect]
     Active Substance: RIVAROXABAN
     Indication: Thrombosis prophylaxis
     Dosage: 10 MG, QD
     Route: 048
     Dates: start: 20210312
  3. ACETAMINOPHEN [Concomitant]
     Active Substance: ACETAMINOPHEN
     Dosage: 1 DF, QD
     Route: 048
     Dates: start: 20210308, end: 20210309
  4. ACETAMINOPHEN [Concomitant]
     Active Substance: ACETAMINOPHEN
     Dosage: 1 DF, PRN
     Route: 048
     Dates: start: 20210309, end: 20210310
  5. ACETAMINOPHEN [Concomitant]
     Active Substance: ACETAMINOPHEN
     Dosage: 1 DF, PRN
     Route: 048
     Dates: start: 20210310, end: 20210320
  6. SPIRONOLACTONE [Concomitant]
     Active Substance: SPIRONOLACTONE
     Dosage: 0.5 DF, QD
     Route: 048
     Dates: start: 20210219
  7. SPIRONOLACTONE [Concomitant]
     Active Substance: SPIRONOLACTONE
     Dosage: 0.5 DF, QD
     Route: 048
     Dates: start: 20210310, end: 20210320
  8. SPIRONOLACTONE [Concomitant]
     Active Substance: SPIRONOLACTONE
     Dosage: 0.5 DF, QD
     Route: 048
     Dates: start: 20210715, end: 20210724
  9. FUROSEMIDE [Concomitant]
     Active Substance: FUROSEMIDE
     Dosage: 0.5 DF, QD
     Route: 048
     Dates: start: 20210219
  10. FUROSEMIDE [Concomitant]
     Active Substance: FUROSEMIDE
     Dosage: 0.5 DF, QD
     Route: 048
     Dates: start: 20210310, end: 20210310
  11. VALSARTAN [Concomitant]
     Active Substance: VALSARTAN
     Dosage: 1 DF, BID
     Route: 048
     Dates: start: 20210219
  12. VALSARTAN [Concomitant]
     Active Substance: VALSARTAN
     Dosage: 1 DF, BID
     Route: 048
     Dates: start: 20210310, end: 20210320
  13. VALSARTAN [Concomitant]
     Active Substance: VALSARTAN
     Dosage: 1 DF, BID
     Route: 048
     Dates: start: 20210715, end: 20210721
  14. ISOSORBIDE MONONITRATE [Concomitant]
     Active Substance: ISOSORBIDE MONONITRATE
     Dosage: 1 DF, BID
     Route: 048
     Dates: start: 20210219
  15. ISOSORBIDE MONONITRATE [Concomitant]
     Active Substance: ISOSORBIDE MONONITRATE
     Dosage: 1 DF, BID
     Route: 048
     Dates: start: 20210310, end: 20210320
  16. ISOSORBIDE MONONITRATE [Concomitant]
     Active Substance: ISOSORBIDE MONONITRATE
     Dosage: 1 DF, BID
     Route: 048
     Dates: start: 20210715, end: 20210718
  17. AMLODIPINE BESYLATE [Concomitant]
     Active Substance: AMLODIPINE BESYLATE
     Dosage: 1 DF, QD
     Route: 048
     Dates: start: 20210715, end: 20210724
  18. EDOXABAN [Concomitant]
     Active Substance: EDOXABAN
     Dosage: 0.5 DF, QD
     Route: 048
     Dates: start: 20210715, end: 20210723
  19. LACTATED RINGERS SOLUTION [Concomitant]
     Active Substance: CALCIUM CHLORIDE\POTASSIUM CHLORIDE\SODIUM CHLORIDE\SODIUM LACTATE
     Dosage: 500 ML, STAT
     Dates: start: 20210308, end: 20210309
  20. SUCRALFATE [Concomitant]
     Active Substance: SUCRALFATE
     Dosage: 1 DF, STAT
     Route: 048
     Dates: start: 20210308, end: 20210309
  21. ESOMEPRAZOLE [Concomitant]
     Active Substance: ESOMEPRAZOLE
     Dosage: 40 MG, QD
     Route: 042
     Dates: start: 20210315, end: 20210316
  22. ZOLPIDEM TARTRATE [Concomitant]
     Active Substance: ZOLPIDEM TARTRATE
     Dosage: 0.5 DF, PRN
     Route: 048
     Dates: start: 20210304
  23. ZOLPIDEM TARTRATE [Concomitant]
     Active Substance: ZOLPIDEM TARTRATE
     Dosage: 0.5 DF, PRN
     Route: 048
     Dates: start: 20210310, end: 20210310
  24. ZOLPIDEM TARTRATE [Concomitant]
     Active Substance: ZOLPIDEM TARTRATE
     Dosage: 0.5 DF, PRN
     Route: 048
     Dates: start: 20210311, end: 20210320
  25. LINAGLIPTIN [Concomitant]
     Active Substance: LINAGLIPTIN
     Dosage: 1 DF, QD
     Route: 048
     Dates: start: 20210304
  26. LINAGLIPTIN [Concomitant]
     Active Substance: LINAGLIPTIN
     Dosage: 1 DF, QD
     Route: 048
     Dates: start: 20210310, end: 20210320
  27. INSULIN DEGLUDEC [Concomitant]
     Active Substance: INSULIN DEGLUDEC
     Dosage: 15 U, QD
     Dates: start: 20210304
  28. INSULIN DEGLUDEC [Concomitant]
     Active Substance: INSULIN DEGLUDEC
     Dosage: 15 U, QD
     Dates: start: 20210310, end: 20210311
  29. INSULIN DEGLUDEC [Concomitant]
     Active Substance: INSULIN DEGLUDEC
     Dosage: 12 U, QD
     Dates: start: 20210312, end: 20210320
  30. GLIMEPIRIDE [Concomitant]
     Active Substance: GLIMEPIRIDE
     Dosage: 1 DF, QD
     Route: 048
     Dates: start: 20210304
  31. GLIMEPIRIDE [Concomitant]
     Active Substance: GLIMEPIRIDE
     Dosage: 1 DF, QD
     Route: 048
     Dates: start: 20210310, end: 20210320
  32. INSULIN ASPART [Concomitant]
     Active Substance: INSULIN ASPART
     Dosage: 5 U, SC, QPM
     Dates: start: 20210304
  33. INSULIN ASPART [Concomitant]
     Active Substance: INSULIN ASPART
     Dosage: 5 U, SC, QPM
     Dates: start: 20210310, end: 20210311
  34. INSULIN ASPART [Concomitant]
     Active Substance: INSULIN ASPART
     Dosage: 2 U, SC, ASORDER
     Dates: start: 20210310, end: 20210311
  35. INSULIN ASPART [Concomitant]
     Active Substance: INSULIN ASPART
     Dosage: 2 U, SC, ASORDER
     Dates: start: 20210311, end: 20210314
  36. INSULIN ASPART [Concomitant]
     Active Substance: INSULIN ASPART
     Dosage: 2 U, SC, ASORDER
     Dates: start: 20210314, end: 20210320
  37. INSULIN NOS [Concomitant]
     Active Substance: INSULIN NOS
     Dosage: 10 U, SC, STAT
     Dates: start: 20210310, end: 20210311
  38. INSULIN NOS [Concomitant]
     Active Substance: INSULIN NOS
     Dosage: 2 U, PSC, RN
     Dates: start: 20210310, end: 20210310
  39. DIPHENHYDRAMINE HYDROCHLORIDE [Concomitant]
     Active Substance: DIPHENHYDRAMINE HYDROCHLORIDE
     Dosage: 30 MG, ONCE
     Dates: start: 20210309, end: 20210310

REACTIONS (3)
  - Hepatic encephalopathy [Recovered/Resolved]
  - Upper gastrointestinal haemorrhage [Recovered/Resolved]
  - Blood loss anaemia [Recovered/Resolved]

NARRATIVE: CASE EVENT DATE: 20210309
